FAERS Safety Report 5466058-6 (Version None)
Quarter: 2007Q3

REPORT INFORMATION
  Report Type: 
  Country: None (occurrence: None)
  Receive Date: 20070919
  Receipt Date: 20070914
  Transmission Date: 20080115
  Serious: Yes (Death)
  Sender: FDA-Public Use
  Company Number: 066-C5013-07090735

PATIENT
  Age: 64 Year
  Sex: Female

DRUGS (4)
  1. CC-5013 (LENALIDOMIDE) (CAPSULES) [Suspect]
     Indication: MULTIPLE MYELOMA
     Dosage: 15 MG, DAILY, ORAL
     Route: 048
     Dates: start: 20070402, end: 20070716
  2. VELCADE [Concomitant]
  3. EPREX [Concomitant]
  4. GRANULOKINE [Concomitant]

REACTIONS (2)
  - CEREBRAL HAEMORRHAGE [None]
  - THROMBOCYTOPENIA [None]
